FAERS Safety Report 4389480-8 (Version None)
Quarter: 2004Q3

REPORT INFORMATION
  Report Type: 
  Country: None (occurrence: None)
  Receive Date: 20040702
  Receipt Date: 20040628
  Transmission Date: 20050211
  Serious: Yes (Hospitalization)
  Sender: FDA-Public Use
  Company Number: US-BRISTOL-MYERS SQUIBB COMPANY-12627295

PATIENT
  Age: 77 Year
  Sex: Male

DRUGS (5)
  1. CETUXIMAB [Suspect]
     Indication: COLORECTAL CANCER METASTATIC
     Dosage: INITIAL TX DATE: 04-MAY-04. 7 DOSES AT THE TIME OF THE EVENT.
     Route: 042
     Dates: start: 20040622, end: 20040622
  2. OXALIPLATIN [Suspect]
     Indication: COLORECTAL CANCER METASTATIC
     Dosage: INITIAL TX DATE: 04-MAY-04.  PT HAD REC'D 3 COURSES PRIOR TO EVENT
     Route: 042
     Dates: start: 20040615, end: 20040615
  3. FLUOROURACIL [Suspect]
     Indication: COLORECTAL CANCER METASTATIC
     Dosage: INITIAL TX DATE: 04-MAY-04. PT HAD REC'D 3 COURSES PRIOR TO EVENT
     Route: 042
     Dates: start: 20040616, end: 20040616
  4. NEULASTA [Concomitant]
     Dates: start: 20040617, end: 20040617
  5. COUMADIN [Concomitant]
     Dates: start: 20040401

REACTIONS (2)
  - FEELING ABNORMAL [None]
  - PANCYTOPENIA [None]
